FAERS Safety Report 21461264 (Version 1)
Quarter: 2022Q4

REPORT INFORMATION
  Report Type: Report from Study
  Country: US (occurrence: US)
  Receive Date: 20221015
  Receipt Date: 20221015
  Transmission Date: 20230113
  Serious: No
  Sender: FDA-Public Use
  Company Number: US-ABBVIE-4132556

PATIENT
  Sex: Female

DRUGS (2)
  1. RINVOQ [Suspect]
     Active Substance: UPADACITINIB
     Indication: Rheumatoid arthritis
     Route: 048
  2. Moderna Covid [Concomitant]
     Indication: COVID-19 immunisation
     Dosage: COVID BOOSTER VACCINE
     Route: 030

REACTIONS (5)
  - Nasopharyngitis [Recovering/Resolving]
  - Chest pain [Recovering/Resolving]
  - Somnolence [Recovering/Resolving]
  - Musculoskeletal stiffness [Recovering/Resolving]
  - Fatigue [Recovering/Resolving]
